FAERS Safety Report 5285331-8 (Version None)
Quarter: 2007Q2

REPORT INFORMATION
  Report Type: 
  Country: None (occurrence: None)
  Receive Date: 20070403
  Receipt Date: 20070327
  Transmission Date: 20071010
  Serious: Yes (Hospitalization)
  Sender: FDA-Public Use
  Company Number: FR-PFIZER INC-2007023917

PATIENT
  Sex: Male
  Weight: 40 kg

DRUGS (10)
  1. SOLU-MEDROL [Suspect]
     Route: 042
  2. FOSCARNET SODIUM [Suspect]
     Route: 042
  3. IMATINIB MESYLATE [Suspect]
     Route: 048
  4. MESALAZINE [Suspect]
     Route: 048
  5. OMEPRAZOLE [Suspect]
     Route: 048
  6. NALBUPHINE HCL [Concomitant]
  7. ALIZAPRIDE HYDROCHLORIDE [Concomitant]
  8. ITRACONAZOLE [Concomitant]
  9. IMMUNOGLOBULINES HUMAINES CNTS [Concomitant]
  10. VALACYCLOVIR HCL [Concomitant]

REACTIONS (1)
  - BLOOD AMYLASE INCREASED [None]
